FAERS Safety Report 6518343-4 (Version None)
Quarter: 2009Q4

REPORT INFORMATION
  Report Type: 
  Country: None (occurrence: None)
  Receive Date: 20091224
  Receipt Date: 20091123
  Transmission Date: 20100525
  Serious: No
  Sender: FDA-Public Use
  Company Number: US-BAYER-200941300NA

PATIENT
  Age: 41 Year
  Sex: Female

DRUGS (3)
  1. MIRENA [Suspect]
     Indication: CONTRACEPTION
     Dosage: CONTINUOUS
     Route: 015
     Dates: start: 20081201
  2. HYDROCODONE [Concomitant]
     Indication: BACK INJURY
  3. ANTIINFLAMMATORY MEDS NOS [Concomitant]
     Indication: BACK INJURY

REACTIONS (4)
  - BACK INJURY [None]
  - BREAST TENDERNESS [None]
  - MENSTRUATION IRREGULAR [None]
  - MICTURITION URGENCY [None]
